FAERS Safety Report 22075774 (Version 7)
Quarter: 2023Q2

REPORT INFORMATION
  Report Type: Report from Study
  Country: PT (occurrence: PT)
  Receive Date: 20230308
  Receipt Date: 20230619
  Transmission Date: 20230721
  Serious: Yes (Death, Life-Threatening, Hospitalization)
  Sender: FDA-Public Use
  Company Number: PT-JNJFOC-20230228973

PATIENT
  Age: 62 Year
  Sex: Male

DRUGS (2)
  1. AMIVANTAMAB [Suspect]
     Active Substance: AMIVANTAMAB
     Indication: Non-small cell lung cancer
     Dosage: REPORTED AS 7 ML VIAL
     Route: 042
     Dates: start: 20230130, end: 20230131
  2. APIXABAN [Concomitant]
     Active Substance: APIXABAN
     Indication: Thrombosis prophylaxis
     Route: 048
     Dates: start: 20230131

REACTIONS (3)
  - Pneumonitis [Fatal]
  - Immune-mediated lung disease [Not Recovered/Not Resolved]
  - Infusion related reaction [Recovered/Resolved]

NARRATIVE: CASE EVENT DATE: 20230130
